FAERS Safety Report 7963851-2 (Version None)
Quarter: 2011Q4

REPORT INFORMATION
  Report Type: 
  Country: None (occurrence: None)
  Receive Date: 20111205
  Receipt Date: 20111118
  Transmission Date: 20120403
  Serious: Yes (Other)
  Sender: FDA-Public Use
  Company Number: 1000025202

PATIENT
  Age: 30 Year
  Sex: Female
  Weight: 65 kg

DRUGS (3)
  1. RISPERDAL CONSTA (RISPERIDONE) (RISPERIDONE) [Concomitant]
  2. RIVOTRIL (CLONAZEPAM) (CLONAZEPAM) [Concomitant]
  3. MILNACIPRAN (MILNACIPRAN HYDROCHLORIDE) (CAPSULES) [Suspect]
     Dosage: 50 MG (25 MG, 2 IN 1 D), ORAL
     Route: 048
     Dates: start: 20110815, end: 20110101

REACTIONS (7)
  - MUSCLE SPASMS [None]
  - SUICIDAL IDEATION [None]
  - AGGRESSION [None]
  - AMNESIA [None]
  - COGNITIVE DISORDER [None]
  - URINARY TRACT DISORDER [None]
  - AFFECTIVE DISORDER [None]
